FAERS Safety Report 18139537 (Version 5)
Quarter: 2022Q1

REPORT INFORMATION
  Report Type: Spontaneous
  Country: US (occurrence: US)
  Receive Date: 20200812
  Receipt Date: 20220113
  Transmission Date: 20220423
  Serious: Yes (Other)
  Sender: FDA-Public Use
  Company Number: US-PFIZER INC-2020303828

PATIENT
  Age: 70 Year
  Sex: Female
  Weight: 72.57 kg

DRUGS (10)
  1. IBRANCE [Suspect]
     Active Substance: PALBOCICLIB
     Indication: Breast cancer metastatic
     Dosage: 125 MG, CYCLIC [TAKE ONE DAILY FOR 21 DAYS AND OFF FOR 7]
     Dates: start: 202007
  2. IBRANCE [Suspect]
     Active Substance: PALBOCICLIB
     Dosage: 125 MG
     Dates: start: 20190403, end: 20211227
  3. PLAVIX [Concomitant]
     Active Substance: CLOPIDOGREL BISULFATE
     Indication: Aortic valve calcification
     Dosage: 75 MG, 1X/DAY
     Route: 048
     Dates: start: 20200527
  4. ASPIRIN [Concomitant]
     Active Substance: ASPIRIN
     Indication: Cardiac disorder
     Dosage: 81 MG, 1X/DAY
     Dates: start: 20200527
  5. GABAPENTIN [Concomitant]
     Active Substance: GABAPENTIN
     Indication: Neuralgia
     Dosage: UNK [100MG; TAKE FOUR IN DIVIDED DOSES AS INSTRUCTED]
  6. PEPCID [Concomitant]
     Active Substance: FAMOTIDINE
     Indication: Dyspepsia
     Dosage: 40 MG, 2X/DAY
     Route: 048
     Dates: start: 20200527
  7. PROZAC [Concomitant]
     Active Substance: FLUOXETINE HYDROCHLORIDE
     Indication: Depression
     Dosage: 20 MG, 2X/DAY
     Route: 048
  8. ATIVAN [Concomitant]
     Active Substance: LORAZEPAM
     Indication: Sleep disorder
     Dosage: 0.5 MG, AS NEEDED [DAILY BY MOUTH TWICE DAILY AS NEEDED]
     Route: 048
  9. AROMASIN [Concomitant]
     Active Substance: EXEMESTANE
     Indication: Neoplasm malignant
     Dosage: 25 MG, 1X/DAY
     Route: 048
  10. ZOMETA [Concomitant]
     Active Substance: ZOLEDRONIC ACID
     Indication: Metastases to bone
     Dosage: UNK (BIO PHOSPHATE IV EVERY THREE MONTHS)
     Route: 042

REACTIONS (18)
  - Interstitial lung disease [Unknown]
  - Product use complaint [Unknown]
  - Poor quality product administered [Unknown]
  - Product odour abnormal [Unknown]
  - Product taste abnormal [Unknown]
  - Dyspepsia [Not Recovered/Not Resolved]
  - Urine odour abnormal [Not Recovered/Not Resolved]
  - Blood creatinine increased [Unknown]
  - Abnormal faeces [Unknown]
  - Breath odour [Unknown]
  - Oesophageal irritation [Unknown]
  - Diarrhoea [Recovered/Resolved]
  - Herpes zoster [Unknown]
  - Fatigue [Unknown]
  - Cerebral disorder [Unknown]
  - Neoplasm progression [Unknown]
  - Pruritus [Unknown]
  - Rash [Unknown]

NARRATIVE: CASE EVENT DATE: 20200101
